FAERS Safety Report 8074053-6 (Version None)
Quarter: 2011Q4

REPORT INFORMATION
  Report Type: 
  Country: None (occurrence: None)
  Receive Date: 20111221
  Receipt Date: 20101208
  Transmission Date: 20120403
  Serious: Yes (Other)
  Sender: FDA-Public Use
  Company Number: PHHY2009US66815

PATIENT
  Age: 53 Year
  Sex: Female

DRUGS (3)
  1. CYTOXAN [Concomitant]
  2. INSULIN [Concomitant]
  3. EXJADE [Suspect]
     Dosage: 1500 MG, QD, ORAL
     Route: 048
     Dates: end: 20090401

REACTIONS (1)
  - BLOOD CREATININE INCREASED [None]
